FAERS Safety Report 4934793-1 (Version None)
Quarter: 2006Q1

REPORT INFORMATION
  Report Type: 
  Country: None (occurrence: None)
  Receive Date: 20060307
  Receipt Date: 20050829
  Transmission Date: 20060701
  Serious: Yes (Hospitalization)
  Sender: FDA-Public Use
  Company Number: US-MERCK-0508USA05078

PATIENT
  Age: 57 Year
  Sex: Male
  Weight: 68 kg

DRUGS (7)
  1. VIOXX [Suspect]
     Indication: MUSCLE STRAIN
     Route: 048
     Dates: start: 19991022, end: 20000407
  2. VIOXX [Suspect]
     Route: 048
     Dates: start: 20000101
  3. VIOXX [Suspect]
     Indication: BURSITIS
     Route: 048
     Dates: start: 19991022, end: 20000407
  4. VIOXX [Suspect]
     Route: 048
     Dates: start: 20000101
  5. TYLENOL W/ CODEINE NO. 3 [Concomitant]
     Route: 048
  6. PAXIL [Concomitant]
     Route: 065
  7. ELAVIL [Concomitant]
     Route: 048

REACTIONS (24)
  - ACUTE MYOCARDIAL INFARCTION [None]
  - AKINESIA [None]
  - ANXIETY [None]
  - ARTERIOSCLEROSIS CORONARY ARTERY [None]
  - BLOOD TESTOSTERONE DECREASED [None]
  - CARDIAC ANEURYSM [None]
  - CARDIAC FAILURE [None]
  - CARDIAC FAILURE CONGESTIVE [None]
  - CARDIOGENIC SHOCK [None]
  - CHEST PAIN [None]
  - CONGESTIVE CARDIOMYOPATHY [None]
  - CONSTIPATION [None]
  - CORONARY ARTERY DISEASE [None]
  - DRUG WITHDRAWAL SYNDROME [None]
  - GASTRITIS [None]
  - GASTROOESOPHAGEAL REFLUX DISEASE [None]
  - HYPERLIPIDAEMIA [None]
  - HYPERTENSION [None]
  - INSOMNIA [None]
  - LOBAR PNEUMONIA [None]
  - MYALGIA [None]
  - OEDEMA PERIPHERAL [None]
  - RENAL DISORDER [None]
  - STOMACH DISCOMFORT [None]
